FAERS Safety Report 20762442 (Version 2)
Quarter: 2023Q2

REPORT INFORMATION
  Report Type: Spontaneous
  Country: US (occurrence: US)
  Receive Date: 20220428
  Receipt Date: 20230428
  Transmission Date: 20230721
  Serious: Yes (Other)
  Sender: FDA-Public Use
  Company Number: US-PFIZER INC-202200599108

PATIENT
  Age: 32 Year
  Sex: Female

DRUGS (4)
  1. XELJANZ [Suspect]
     Active Substance: TOFACITINIB CITRATE
     Indication: Colitis ulcerative
     Dosage: 10 MG, 2X/DAY
     Route: 048
     Dates: start: 202001
  2. XELJANZ [Suspect]
     Active Substance: TOFACITINIB CITRATE
     Dosage: 10 MG, 2X/DAY
     Route: 048
     Dates: start: 20200220
  3. XELJANZ [Suspect]
     Active Substance: TOFACITINIB CITRATE
     Dosage: 5 MG, 2X/DAY
     Route: 048
  4. XELJANZ [Suspect]
     Active Substance: TOFACITINIB CITRATE
     Dosage: 10 MG, 2X/DAY
     Route: 048
     Dates: start: 20211105

REACTIONS (23)
  - Immunosuppression [Unknown]
  - Rectal haemorrhage [Unknown]
  - Ankylosing spondylitis [Unknown]
  - Muscle spasms [Unknown]
  - Gastrointestinal pain [Unknown]
  - Diarrhoea [Unknown]
  - Fatigue [Unknown]
  - Peripheral swelling [Unknown]
  - Muscle spasms [Unknown]
  - Pruritus [Unknown]
  - Dry skin [Unknown]
  - Constipation [Unknown]
  - Rash [Unknown]
  - Flatulence [Unknown]
  - Frequent bowel movements [Unknown]
  - Anxiety [Unknown]
  - Condition aggravated [Unknown]
  - Arthralgia [Unknown]
  - Nausea [Not Recovered/Not Resolved]
  - Upper-airway cough syndrome [Unknown]
  - Dyspepsia [Unknown]
  - Spondyloarthropathy [Unknown]
  - Gastrointestinal disorder [Unknown]
